FAERS Safety Report 19883301 (Version 1)
Quarter: 2021Q3

REPORT INFORMATION
  Report Type: Spontaneous
  Country: US (occurrence: US)
  Receive Date: 20210926
  Receipt Date: 20210926
  Transmission Date: 20211014
  Serious: Yes (Death)
  Sender: FDA-Public Use
  Company Number: US-PROCTER+GAMBLE-PH21007819

PATIENT

DRUGS (1)
  1. VICKS VAPORUB [Suspect]
     Active Substance: CAMPHOR (SYNTHETIC)\EUCALYPTUS OIL\MENTHOL
     Dosage: EVERYDAY
     Route: 045

REACTIONS (3)
  - Incorrect route of product administration [Fatal]
  - Death [Fatal]
  - Exposure via inhalation [Fatal]
